FAERS Safety Report 9436674 (Version 1)
Quarter: 2013Q3

REPORT INFORMATION
  Report Type: Spontaneous
  Country: JP (occurrence: JP)
  Receive Date: 20130802
  Receipt Date: 20130802
  Transmission Date: 20140515
  Serious: Yes (Other)
  Sender: FDA-Public Use
  Company Number: JP-ELI_LILLY_AND_COMPANY-JP201204000063

PATIENT
  Age: 65 Year
  Sex: Female

DRUGS (2)
  1. FORTEO [Suspect]
     Dosage: UNK
     Route: 058
     Dates: end: 2013
  2. FORTEO [Suspect]
     Dosage: UNK
     Route: 058
     Dates: start: 201306

REACTIONS (4)
  - Fracture [Not Recovered/Not Resolved]
  - Medication error [Unknown]
  - Hypoglycaemia [Not Recovered/Not Resolved]
  - Malaise [Not Recovered/Not Resolved]
